FAERS Safety Report 18987000 (Version 2)
Quarter: 2021Q2

REPORT INFORMATION
  Report Type: Report from Study
  Country: BE (occurrence: BE)
  Receive Date: 20210309
  Receipt Date: 20210421
  Transmission Date: 20210717
  Serious: Yes (Hospitalization, Other)
  Sender: FDA-Public Use
  Company Number: NVSC2021BE038419

PATIENT
  Age: 69 Year
  Sex: Female

DRUGS (3)
  1. BAF312 [Suspect]
     Active Substance: SIPONIMOD
     Indication: SECONDARY PROGRESSIVE MULTIPLE SCLEROSIS
     Dosage: UNK
     Route: 048
     Dates: start: 202007, end: 202102
  2. VESICARE [Suspect]
     Active Substance: SOLIFENACIN SUCCINATE
     Indication: BLADDER DISORDER
     Dosage: UNK
     Route: 065
  3. SOLU?MEDROL [Concomitant]
     Active Substance: METHYLPREDNISOLONE SODIUM SUCCINATE
     Indication: PRODUCT USED FOR UNKNOWN INDICATION
     Dosage: 1 G, QD
     Route: 065
     Dates: start: 20200224

REACTIONS (6)
  - Hallucination [Not Recovered/Not Resolved]
  - Personality change [Unknown]
  - Lymphocyte count decreased [Unknown]
  - Infection [Unknown]
  - Visual impairment [Unknown]
  - Confusional state [Unknown]

NARRATIVE: CASE EVENT DATE: 202101
